FAERS Safety Report 22588559 (Version 1)
Quarter: 2023Q2

REPORT INFORMATION
  Report Type: Spontaneous
  Country: CA (occurrence: CA)
  Receive Date: 20230612
  Receipt Date: 20230612
  Transmission Date: 20230722
  Serious: Yes (Other)
  Sender: FDA-Public Use
  Company Number: CA-TEVA-2023-CA-2893023

PATIENT
  Age: 35 Year
  Sex: Female
  Weight: 120 kg

DRUGS (2)
  1. LIOTHYRONINE SODIUM [Suspect]
     Active Substance: LIOTHYRONINE SODIUM
     Indication: Product used for unknown indication
     Dosage: 100 MICROGRAM DAILY;
     Route: 048
     Dates: start: 20230523, end: 2023
  2. CYTOMEL [Concomitant]
     Active Substance: LIOTHYRONINE SODIUM
     Indication: Product used for unknown indication
     Dosage: 100 G
     Route: 065

REACTIONS (14)
  - Autoimmune thyroiditis [Recovering/Resolving]
  - Hypersomnia [Unknown]
  - Brain fog [Not Recovered/Not Resolved]
  - Cognitive disorder [Unknown]
  - Pain [Unknown]
  - Illness [Unknown]
  - Fatigue [Unknown]
  - Myalgia [Not Recovered/Not Resolved]
  - Heart rate irregular [Not Recovered/Not Resolved]
  - Dysphemia [Unknown]
  - Therapeutic product ineffective [Unknown]
  - Product solubility abnormal [Unknown]
  - Product use issue [Unknown]
  - Adverse event [Unknown]

NARRATIVE: CASE EVENT DATE: 20230501
